FAERS Safety Report 7798024-X (Version None)
Quarter: 2011Q4

REPORT INFORMATION
  Report Type: 
  Country: None (occurrence: None)
  Receive Date: 20111004
  Receipt Date: 20111004
  Transmission Date: 20120403
  Serious: No
  Sender: FDA-Public Use
  Company Number: None

PATIENT
  Sex: Male

DRUGS (3)
  1. VICTRELIS [Suspect]
     Indication: HEPATITIS C
     Dosage: 800MG TID ORALLY
     Route: 048
     Dates: start: 20110706
  2. PEGASYS [Suspect]
     Dosage: 180MCG Q WK S-Q
     Route: 058
     Dates: start: 20110902
  3. RIBAVIRIN [Suspect]
     Dosage: 600MG BID ORALLY
     Route: 048
     Dates: start: 20110803

REACTIONS (5)
  - EPISTAXIS [None]
  - DYSPNOEA [None]
  - HAEMOGLOBIN DECREASED [None]
  - WHITE BLOOD CELL COUNT DECREASED [None]
  - TOTAL LUNG CAPACITY DECREASED [None]
